FAERS Safety Report 5351835-2 (Version None)
Quarter: 2007Q2

REPORT INFORMATION
  Report Type: 
  Country: None (occurrence: None)
  Receive Date: 20070521
  Receipt Date: 20070306
  Transmission Date: 20071010
  Serious: No
  Sender: FDA-Public Use
  Company Number: WAES 0703USA00800

PATIENT
  Age: 67 Year
  Sex: Female

DRUGS (8)
  1. JANUVIA [Suspect]
     Indication: DIABETES MELLITUS NON-INSULIN-DEPENDENT
     Dosage: 100 MG DAILY PO
     Route: 048
     Dates: start: 20061101, end: 20061201
  2. JANUVIA [Suspect]
     Indication: DIABETES MELLITUS NON-INSULIN-DEPENDENT
     Dosage: 100 MG DAILY PO
     Route: 048
     Dates: start: 20070101
  3. ALLEGRA [Concomitant]
  4. AVAPRO [Concomitant]
  5. FLONASE [Concomitant]
  6. FOSAMAX [Concomitant]
  7. LIPITOR [Concomitant]
  8. PREVACID [Concomitant]

REACTIONS (2)
  - BACK PAIN [None]
  - SWELLING FACE [None]
